FAERS Safety Report 23891400 (Version 1)
Quarter: 2024Q2

REPORT INFORMATION
  Report Type: Spontaneous
  Country: US (occurrence: US)
  Receive Date: 20240523
  Receipt Date: 20240523
  Transmission Date: 20240716
  Serious: No
  Sender: FDA-Public Use
  Company Number: US-Dermavant-001046

PATIENT
  Age: 48 Year
  Sex: Female

DRUGS (2)
  1. TAPINAROF [Suspect]
     Active Substance: TAPINAROF
     Indication: Psoriasis
  2. TREMFYA [Concomitant]
     Active Substance: GUSELKUMAB

REACTIONS (1)
  - Drug ineffective [Unknown]
